FAERS Safety Report 7546429-4 (Version None)
Quarter: 2011Q2

REPORT INFORMATION
  Report Type: 
  Country: None (occurrence: None)
  Receive Date: 20110614
  Receipt Date: 20110613
  Transmission Date: 20111010
  Serious: Yes (Hospitalization, Other)
  Sender: FDA-Public Use
  Company Number: TW-PFIZER INC-2011103874

PATIENT
  Age: 75 Year
  Sex: Female

DRUGS (1)
  1. TEMSIROLIMUS [Suspect]
     Indication: MANTLE CELL LYMPHOMA
     Dosage: 175 MG, WEEKLY
     Route: 042

REACTIONS (17)
  - TINNITUS [None]
  - PYREXIA [None]
  - HYPERLIPIDAEMIA [None]
  - HYPERTRIGLYCERIDAEMIA [None]
  - EAR PAIN [None]
  - STOMATITIS [None]
  - PLEURAL EFFUSION [None]
  - PHARYNGEAL INFLAMMATION [None]
  - HYPOPHOSPHATAEMIA [None]
  - TRANSAMINASES INCREASED [None]
  - BLOOD ALKALINE PHOSPHATASE INCREASED [None]
  - INTERSTITIAL LUNG DISEASE [None]
  - HYPERGLYCAEMIA [None]
  - EAR CONGESTION [None]
  - THROMBOCYTOPENIA [None]
  - DEAFNESS [None]
  - HYPERCHOLESTEROLAEMIA [None]
